FAERS Safety Report 10717678 (Version 2)
Quarter: 2015Q1

REPORT INFORMATION
  Report Type: Spontaneous
  Country: JP (occurrence: JP)
  Receive Date: 20150116
  Receipt Date: 20150209
  Transmission Date: 20150721
  Serious: Yes (Other)
  Sender: FDA-Public Use
  Company Number: JP-B.I. PHARMACEUTICALS,INC./RIDGEFIELD-2015-BI-02477NB

PATIENT
  Age: 49 Year
  Sex: Male
  Weight: 75 kg

DRUGS (10)
  1. SUGLAT [Suspect]
     Active Substance: IPRAGLIFLOZIN L-PROLINE
     Indication: DIABETES MELLITUS
     Dosage: 50 MG
     Route: 048
     Dates: start: 20140730, end: 20141011
  2. PURSENNID [Concomitant]
     Active Substance: SENNOSIDES A AND B
     Indication: ENDOSCOPY LARGE BOWEL
     Dosage: 24 MG
     Route: 048
     Dates: start: 20141010, end: 20141010
  3. MICARDIS [Suspect]
     Active Substance: TELMISARTAN
     Indication: HYPERTENSION
     Dosage: 40 MG
     Route: 048
     Dates: start: 20140507, end: 20141011
  4. MOVIPREP [Concomitant]
     Active Substance: ASCORBIC ACID\POLYETHYLENE GLYCOL 3350\POTASSIUM CHLORIDE\SODIUM ASCORBATE\SODIUM CHLORIDE\SODIUM SULFATE
     Indication: ENDOSCOPY LARGE BOWEL
     Dosage: 1000 ML
     Route: 048
     Dates: start: 20141011, end: 20141011
  5. SUGLAT [Suspect]
     Active Substance: IPRAGLIFLOZIN L-PROLINE
     Dosage: 50 MG
     Route: 048
     Dates: start: 20141012
  6. DORMICUM [Concomitant]
     Active Substance: MIDAZOLAM\MIDAZOLAM HYDROCHLORIDE
     Indication: SEDATION
     Dosage: 2.5 MG
     Route: 042
     Dates: start: 20141011, end: 20141011
  7. ANEXATE [Concomitant]
     Active Substance: FLUMAZENIL
     Indication: REVERSAL OF SEDATION
     Dosage: 0.25 MG
     Route: 042
     Dates: start: 20141011, end: 20141011
  8. AMARYL [Concomitant]
     Active Substance: GLIMEPIRIDE
     Indication: DIABETES MELLITUS
     Dosage: 1 MG
     Route: 048
     Dates: start: 20131106
  9. MICARDIS [Suspect]
     Active Substance: TELMISARTAN
     Dosage: 40 MG
     Route: 048
  10. JANUVIA [Concomitant]
     Active Substance: SITAGLIPTIN PHOSPHATE
     Indication: DIABETES MELLITUS
     Dosage: 50 MG
     Route: 048
     Dates: start: 20131106

REACTIONS (2)
  - Shock [Recovered/Resolved]
  - Occult blood positive [Unknown]

NARRATIVE: CASE EVENT DATE: 201408
